FAERS Safety Report 10196428 (Version 3)
Quarter: 2014Q3

REPORT INFORMATION
  Report Type: Spontaneous
  Country: DE (occurrence: DE)
  Receive Date: 20140527
  Receipt Date: 20140723
  Transmission Date: 20150326
  Serious: Yes (Hospitalization)
  Sender: FDA-Public Use
  Company Number: DE-JNJFOC-20140508264

PATIENT
  Age: 59 Year
  Sex: Male

DRUGS (7)
  1. XEPLION [Suspect]
     Active Substance: PALIPERIDONE PALMITATE
     Indication: SCHIZOPHRENIA, PARANOID TYPE
     Route: 030
     Dates: start: 20110719, end: 20110913
  2. RAMIPRIL. [Concomitant]
     Active Substance: RAMIPRIL
     Dosage: SINCE LONG TIME
     Route: 048
  3. XEPLION [Suspect]
     Active Substance: PALIPERIDONE PALMITATE
     Indication: SCHIZOPHRENIA, PARANOID TYPE
     Route: 030
     Dates: start: 20111011
  4. SEROQUEL [Suspect]
     Active Substance: QUETIAPINE FUMARATE
     Indication: SCHIZOPHRENIA, PARANOID TYPE
     Route: 048
     Dates: start: 20110914
  5. SEROQUEL [Suspect]
     Active Substance: QUETIAPINE FUMARATE
     Indication: SCHIZOPHRENIA, PARANOID TYPE
     Route: 048
     Dates: start: 20110831, end: 20110913
  6. SEROQUEL [Suspect]
     Active Substance: QUETIAPINE FUMARATE
     Indication: SCHIZOPHRENIA, PARANOID TYPE
     Dosage: DOSE REDUCED
     Route: 048
     Dates: end: 20111020
  7. SEROQUEL [Suspect]
     Active Substance: QUETIAPINE FUMARATE
     Indication: SCHIZOPHRENIA, PARANOID TYPE
     Route: 048
     Dates: start: 2011, end: 20110830

REACTIONS (16)
  - Gait disturbance [Recovered/Resolved]
  - Long QT syndrome [Recovered/Resolved]
  - Arrhythmia [Unknown]
  - Extrasystoles [Unknown]
  - Tension [Recovered/Resolved]
  - Cognitive disorder [Recovered/Resolved]
  - Diastolic dysfunction [Unknown]
  - Cerebral atrophy [Unknown]
  - Illusion [Unknown]
  - Dysarthria [Recovered/Resolved]
  - Depression [Recovered/Resolved]
  - Disorientation [Recovered/Resolved]
  - Restlessness [Recovered/Resolved]
  - Supraventricular extrasystoles [Unknown]
  - Confusional state [Recovered/Resolved]
  - Apraxia [Recovered/Resolved]

NARRATIVE: CASE EVENT DATE: 2011
